FAERS Safety Report 9228951 (Version 1)
Quarter: 2013Q2

REPORT INFORMATION
  Report Type: Report from Study
  Country: US (occurrence: US)
  Receive Date: 20130412
  Receipt Date: 20130412
  Transmission Date: 20140414
  Serious: Yes (Hospitalization, Other)
  Sender: FDA-Public Use
  Company Number: US-US-EMD SERONO, INC.-7204268

PATIENT
  Age: 51 Year
  Sex: Female
  Weight: 61 kg

DRUGS (4)
  1. REBIF [Suspect]
     Indication: MULTIPLE SCLEROSIS
     Route: 058
     Dates: start: 20100405
  2. BACLOFEN [Concomitant]
     Indication: HEADACHE
  3. LEVOTHYROXINE [Concomitant]
     Indication: THYROID DISORDER
  4. CARBAMAZEPINE [Concomitant]
     Indication: MULTIPLE SCLEROSIS

REACTIONS (3)
  - Abdominal adhesions [Recovered/Resolved]
  - Volvulus [Recovered/Resolved]
  - Convulsion [Recovering/Resolving]
